FAERS Safety Report 14626390 (Version 1)
Quarter: 2018Q1

REPORT INFORMATION
  Report Type: Spontaneous
  Country: US (occurrence: US)
  Receive Date: 20180310
  Receipt Date: 20180310
  Transmission Date: 20180509
  Serious: Yes (Hospitalization)
  Sender: FDA-Public Use
  Company Number: None

PATIENT
  Age: 63 Year
  Sex: Female

DRUGS (1)
  1. TRACLEER [Suspect]
     Active Substance: BOSENTAN
     Indication: PULMONARY ARTERIAL HYPERTENSION
     Route: 048
     Dates: start: 20141202

REACTIONS (6)
  - Decubitus ulcer [None]
  - Coccidioidomycosis [None]
  - Hypotension [None]
  - Chronic respiratory failure [None]
  - Fluid overload [None]
  - Depression [None]

NARRATIVE: CASE EVENT DATE: 20180227
